FAERS Safety Report 7686307-3 (Version None)
Quarter: 2011Q3

REPORT INFORMATION
  Report Type: 
  Country: None (occurrence: None)
  Receive Date: 20110816
  Receipt Date: 20110810
  Transmission Date: 20111222
  Serious: Yes (Hospitalization)
  Sender: FDA-Public Use
  Company Number: US-GENZYME-CAMP-1000630

PATIENT
  Sex: Female
  Weight: 94.785 kg

DRUGS (5)
  1. NEURONTIN [Concomitant]
     Indication: PRODUCT USED FOR UNKNOWN INDICATION
     Dosage: 300 MG, QD
     Route: 048
     Dates: start: 20080828
  2. FROVA [Concomitant]
     Indication: PRODUCT USED FOR UNKNOWN INDICATION
     Dosage: 2.5 MG, QD
     Route: 048
     Dates: start: 20090526
  3. AMITRIPTYLINE HCL [Concomitant]
     Indication: PRODUCT USED FOR UNKNOWN INDICATION
     Dosage: 25 MG, UNK
     Route: 048
     Dates: start: 20090301
  4. ALEMTUZUMAB [Suspect]
     Dosage: 24 MG, QDX3
     Route: 042
     Dates: start: 20090225, end: 20090227
  5. ALEMTUZUMAB [Suspect]
     Indication: MULTIPLE SCLEROSIS
     Dosage: 24 MG, QDX5
     Route: 042
     Dates: start: 20080225, end: 20080229

REACTIONS (4)
  - HEPATITIS ACUTE [None]
  - BRONCHITIS [None]
  - HYPOTHYROIDISM [None]
  - PNEUMONITIS [None]
